FAERS Safety Report 9839573 (Version 1)
Quarter: 2014Q1

REPORT INFORMATION
  Report Type: Spontaneous
  Country: GB (occurrence: GB)
  Receive Date: 20140124
  Receipt Date: 20140124
  Transmission Date: 20141002
  Serious: Yes (Life-Threatening)
  Sender: FDA-Public Use
  Company Number: GB-ROCHE-1337433

PATIENT
  Sex: Male
  Weight: 142.5 kg

DRUGS (10)
  1. COPEGUS [Suspect]
     Indication: HEPATITIS C
     Route: 048
     Dates: start: 20131205
  2. PEGASYS [Suspect]
     Indication: HEPATITIS C
     Route: 058
     Dates: start: 20131205
  3. CO-CODAMOL [Concomitant]
  4. LAMOTRIGINE [Concomitant]
  5. IBUPROFEN [Concomitant]
  6. LORAZEPAM [Concomitant]
  7. MAXEPA [Concomitant]
  8. PAROXETINE [Concomitant]
  9. PROCYCLIDINE [Concomitant]
  10. ZUCLOPENTHIXOL DECANOATE [Concomitant]

REACTIONS (1)
  - Deep vein thrombosis [Recovering/Resolving]
